FAERS Safety Report 10805269 (Version 1)
Quarter: 2015Q1

REPORT INFORMATION
  Report Type: Spontaneous
  Country: US (occurrence: US)
  Receive Date: 20150217
  Receipt Date: 20150217
  Transmission Date: 20150721
  Serious: Yes (Hospitalization, Other)
  Sender: FDA-Public Use
  Company Number: US-AMGEN-USASP2015013415

PATIENT
  Age: 51 Year
  Sex: Male

DRUGS (1)
  1. KYPROLIS [Suspect]
     Active Substance: CARFILZOMIB
     Indication: PLASMA CELL MYELOMA
     Dosage: 20 MG/M2, UNK
     Route: 065

REACTIONS (3)
  - Cardiac failure [Recovering/Resolving]
  - Acute coronary syndrome [Recovering/Resolving]
  - Electrocardiogram QT prolonged [Recovering/Resolving]
